FAERS Safety Report 6342897-4 (Version None)
Quarter: 2009Q3

REPORT INFORMATION
  Report Type: 
  Country: None (occurrence: None)
  Receive Date: 20090908
  Receipt Date: 20090825
  Transmission Date: 20100115
  Serious: Yes (Disabling, Other)
  Sender: FDA-Public Use
  Company Number: BR-ROCHE-653219

PATIENT
  Age: 17 Year
  Sex: Female

DRUGS (1)
  1. ROACUTAN [Suspect]
     Indication: ACNE
     Route: 065

REACTIONS (4)
  - DEPRESSION [None]
  - EDUCATIONAL PROBLEM [None]
  - HEARING IMPAIRED [None]
  - NEUROLOGICAL SYMPTOM [None]
